FAERS Safety Report 5023262-9 (Version None)
Quarter: 2006Q2

REPORT INFORMATION
  Report Type: 
  Country: None (occurrence: None)
  Receive Date: 20060605
  Receipt Date: 20060523
  Transmission Date: 20061013
  Serious: Yes (Death, Hospitalization)
  Sender: FDA-Public Use
  Company Number: GXKR2006TR02924

PATIENT
  Age: 71 Year
  Sex: Female

DRUGS (2)
  1. PACLITAXEL (NGX) (PACLITAXEL) UNKNOWN [Suspect]
     Indication: OVARIAN CANCER
     Dosage: 175 MG/M2, INFUSION
  2. CARBOPLATIN [Suspect]
     Indication: OVARIAN CANCER

REACTIONS (13)
  - ASCITES [None]
  - CARBOHYDRATE ANTIGEN 125 INCREASED [None]
  - CARDIAC ARREST [None]
  - CARDIAC FAILURE [None]
  - DISEASE RECURRENCE [None]
  - FEBRILE NEUTROPENIA [None]
  - HAEMODIALYSIS [None]
  - LYMPHADENOPATHY [None]
  - NAUSEA [None]
  - PANCYTOPENIA [None]
  - RENAL FAILURE ACUTE [None]
  - SEPSIS [None]
  - SUDDEN HEARING LOSS [None]
